FAERS Safety Report 4825170-2 (Version None)
Quarter: 2005Q4

REPORT INFORMATION
  Report Type: 
  Country: None (occurrence: None)
  Receive Date: 20051109
  Receipt Date: 20051031
  Transmission Date: 20060501
  Serious: Yes (Death)
  Sender: FDA-Public Use
  Company Number: HQWYE382803NOV05

PATIENT
  Sex: Male

DRUGS (5)
  1. ZOSYN [Suspect]
  2. ALLOPURINOL [Suspect]
  3. CEPHALEXIN [Suspect]
  4. CIPROFLOXACIN [Suspect]
  5. LEVAQUIN [Suspect]

REACTIONS (1)
  - STEVENS-JOHNSON SYNDROME [None]
